FAERS Safety Report 9781054 (Version 3)
Quarter: 2014Q2

REPORT INFORMATION
  Report Type: Report from Study
  Country: US (occurrence: US)
  Receive Date: 20131224
  Receipt Date: 20140401
  Transmission Date: 20141212
  Serious: Yes (Death, Hospitalization, Other)
  Sender: FDA-Public Use
  Company Number: US-ASTELLAS-2013EU011355

PATIENT
  Age: 76 Year
  Sex: Male
  Weight: 120 kg

DRUGS (20)
  1. ENZALUTAMIDE [Suspect]
     Indication: PROSTATE CANCER METASTATIC
     Dosage: 160 MG, UID/QD
     Route: 048
     Dates: start: 20110903, end: 20131206
  2. XALATAN [Concomitant]
     Dosage: 1 DROPS, UID/QD
     Route: 065
  3. TOPROL [Concomitant]
     Dosage: 100 MG, UID/QD
     Route: 048
  4. PRADAXA [Concomitant]
     Dosage: 150 MG, BID
     Route: 048
  5. HYDRODIURIL [Concomitant]
     Dosage: 25 MG, UID/QD
     Route: 048
  6. PRINIVIL [Concomitant]
     Dosage: 40 MG, UID/QD
     Route: 048
  7. ADALAT [Concomitant]
     Indication: HYPERTENSION
     Dosage: 90 MG, UID/QD
     Route: 048
     Dates: start: 2005, end: 20130605
  8. ZOCOR [Concomitant]
     Dosage: 20 MG, UID/QD
     Route: 048
  9. SURFAK [Concomitant]
     Dosage: 240 MG, UID/QD
     Route: 048
  10. ASPIRIN [Concomitant]
     Dosage: 81 MG, UNKNOWN/D
     Route: 048
  11. ASCORBIC ACID [Concomitant]
     Dosage: 500 MG, UID/QD
     Route: 065
  12. TYLENOL EXTRA STRENGTH [Concomitant]
     Dosage: 500 MG, UID/QD
     Route: 048
  13. MOBIC [Concomitant]
     Dosage: 15 MG, UID/QD
     Route: 048
  14. LUPRON [Concomitant]
     Indication: PROSTATE CANCER
     Dosage: 22.5 MG, OTHER
     Route: 058
     Dates: start: 20101203
  15. VARDENAFIL [Concomitant]
     Indication: ERECTILE DYSFUNCTION
     Dosage: 20 MG, PRN
     Route: 048
     Dates: start: 2005
  16. METHOCARBAMOL [Concomitant]
     Indication: MUSCLE SPASMS
     Dosage: 500 MG, UID/QD
     Route: 048
     Dates: start: 2005
  17. MULTIVITAMIN                       /00097801/ [Concomitant]
     Indication: NUTRITIONAL SUPPLEMENTATION
     Dosage: 1 UNK, UID/QD
     Route: 048
     Dates: start: 2005
  18. MEGACE [Concomitant]
     Indication: WEIGHT DECREASED
     Dosage: 10 G, BID
     Route: 048
     Dates: start: 20131127, end: 20131207
  19. VALIUM                             /00017001/ [Concomitant]
     Indication: BACK PAIN
     Dosage: 5 MG, PRN
     Route: 048
     Dates: start: 20131127, end: 20131207
  20. DILTIAZEM [Concomitant]
     Indication: ATRIAL FIBRILLATION
     Dosage: 20 MG, UID/QD
     Route: 042
     Dates: start: 20131115, end: 20131115

REACTIONS (2)
  - B-cell lymphoma [Not Recovered/Not Resolved]
  - Multi-organ failure [Fatal]
